FAERS Safety Report 18265353 (Version 2)
Quarter: 2020Q4

REPORT INFORMATION
  Report Type: Spontaneous
  Country: US (occurrence: US)
  Receive Date: 20200915
  Receipt Date: 20201109
  Transmission Date: 20210113
  Serious: Yes (Other)
  Sender: FDA-Public Use
  Company Number: US-GW PHARMA-202009USGW03059

PATIENT

DRUGS (12)
  1. LAMOTRIGINE. [Concomitant]
     Active Substance: LAMOTRIGINE
     Indication: PRODUCT USED FOR UNKNOWN INDICATION
     Dosage: 75 MILLIGRAM, BID
     Route: 065
  2. VALPROIC ACID. [Concomitant]
     Active Substance: VALPROIC ACID
     Indication: SEIZURE
     Dosage: 175 MILLIGRAM, BID (RECOMMENDED SLOW UP TITRATION TO 200 MG BID AND THEN 250 MG BID WHICH MIGHT HELP
     Route: 065
  3. BRIVIACT [Concomitant]
     Active Substance: BRIVARACETAM
     Indication: PRODUCT USED FOR UNKNOWN INDICATION
     Dosage: 30 MILLIGRAM, BID
     Route: 065
  4. CLORAZEPATE [Concomitant]
     Active Substance: CLORAZEPATE DIPOTASSIUM
     Indication: PRODUCT USED FOR UNKNOWN INDICATION
     Dosage: 18.75 MILLIGRAM, QD (7.5 MG IN THE MORNING, 11.25 MG IN THE EVENING)
     Route: 065
  5. CLONIDINE. [Concomitant]
     Active Substance: CLONIDINE
     Indication: PRODUCT USED FOR UNKNOWN INDICATION
     Dosage: 0.2 MILLIGRAM, QD AT NIGHT
     Route: 065
  6. BACLOFEN. [Concomitant]
     Active Substance: BACLOFEN
     Indication: PRODUCT USED FOR UNKNOWN INDICATION
     Dosage: 7.5 MILLIGRAM, BID
     Route: 065
  7. CLOBAZAM. [Interacting]
     Active Substance: CLOBAZAM
     Dosage: UNK, DOSE REDUCED
     Route: 065
     Dates: start: 202003
  8. EPIDIOLEX [Suspect]
     Active Substance: CANNABIDIOL
     Indication: LENNOX-GASTAUT SYNDROME
     Dosage: 150 MILLIGRAM, QD
     Route: 048
     Dates: start: 202003
  9. EPIDIOLEX [Interacting]
     Active Substance: CANNABIDIOL
     Dosage: 120 MILLIGRAM, QD (ON SOME DAYS BEING REDUCED TO 120 MG)
     Route: 048
     Dates: start: 2020
  10. CLOBAZAM. [Interacting]
     Active Substance: CLOBAZAM
     Indication: PRODUCT USED FOR UNKNOWN INDICATION
     Dosage: 30 MILLIGRAM, QD (10 MG IN THE MORNING AND 20 MG AT NIGHT)
     Route: 065
     Dates: end: 202003
  11. DIASTAT [DIAZEPAM] [Concomitant]
     Indication: SEIZURE
     Dosage: UNK, AS NEEDED
     Route: 065
  12. TRAZODONE [Concomitant]
     Active Substance: TRAZODONE HYDROCHLORIDE
     Indication: PRODUCT USED FOR UNKNOWN INDICATION
     Dosage: 25 MILLIGRAM, QD AT NIGHT
     Route: 065

REACTIONS (5)
  - Sleep disorder [Unknown]
  - Seizure [Not Recovered/Not Resolved]
  - Sedation [Unknown]
  - Drug interaction [Unknown]
  - Abnormal behaviour [Unknown]

NARRATIVE: CASE EVENT DATE: 2020
